FAERS Safety Report 18830667 (Version 1)
Quarter: 2021Q1

REPORT INFORMATION
  Report Type: Spontaneous
  Country: US (occurrence: US)
  Receive Date: 20210201
  Receipt Date: 20210201
  Transmission Date: 20210419
  Serious: No
  Sender: FDA-Public Use
  Company Number: US-ABBVIE-20K-163-3650640-00

PATIENT
  Age: 29 Year
  Sex: Female

DRUGS (1)
  1. HUMIRA [Suspect]
     Active Substance: ADALIMUMAB
     Indication: ANKYLOSING SPONDYLITIS
     Route: 058

REACTIONS (21)
  - Musculoskeletal stiffness [Unknown]
  - Neck pain [Unknown]
  - Red blood cell sedimentation rate increased [Unknown]
  - Bone marrow oedema [Unknown]
  - Arthritis [Unknown]
  - Pain in extremity [Unknown]
  - Back disorder [Unknown]
  - Sacroiliitis [Unknown]
  - Joint swelling [Unknown]
  - Synovial disorder [Unknown]
  - Pain in extremity [Unknown]
  - Muscle spasms [Unknown]
  - Limb discomfort [Unknown]
  - Joint noise [Unknown]
  - Dysstasia [Unknown]
  - Headache [Unknown]
  - Musculoskeletal stiffness [Unknown]
  - Pharyngitis streptococcal [Unknown]
  - Antinuclear antibody positive [Unknown]
  - Arthropathy [Unknown]
  - Hypermobility syndrome [Unknown]

NARRATIVE: CASE EVENT DATE: 2014
